FAERS Safety Report 13551383 (Version 2)
Quarter: 2017Q3

REPORT INFORMATION
  Report Type: Spontaneous
  Country: BE (occurrence: BE)
  Receive Date: 20170516
  Receipt Date: 20170724
  Transmission Date: 20171127
  Serious: Yes (Hospitalization)
  Sender: FDA-Public Use
  Company Number: BE-TEVA-769321ISR

PATIENT
  Age: 65 Year
  Sex: Female
  Weight: 52.2 kg

DRUGS (21)
  1. DOXORUBICIN [Suspect]
     Active Substance: DOXORUBICIN
     Dosage: 30 MG/M2 DAILY;
     Route: 041
     Dates: start: 201701, end: 201702
  2. GLUCOSE 5% + NACL 0.9% + MAGNESIUM [Concomitant]
  3. DIPIPERON [Concomitant]
     Active Substance: PIPAMPERONE
  4. LYSANXIA [Concomitant]
     Active Substance: PRAZEPAM
  5. DAFALGAN [Concomitant]
     Active Substance: ACETAMINOPHEN
  6. PANTOMED (PANTOPRAZOLE SODIUM) [Concomitant]
     Active Substance: PANTOPRAZOLE SODIUM
  7. D-VITAL [Concomitant]
  8. SIPRALEXA [Concomitant]
     Active Substance: ESCITALOPRAM OXALATE
  9. LITICAN [Concomitant]
     Active Substance: ALIZAPRIDE HYDROCHLORIDE
  10. CARBOPLATIN. [Suspect]
     Active Substance: CARBOPLATIN
     Dosage: DAILY DOSE: 5 AUC
     Route: 041
     Dates: start: 201701, end: 201702
  11. DOXORUBICIN [Suspect]
     Active Substance: DOXORUBICIN
     Indication: OVARIAN GERM CELL EMBRYONAL CARCINOMA STAGE III
     Dosage: 30 MG/M2 DAILY;
     Route: 041
     Dates: start: 20161222, end: 20161222
  12. FURADANTINE [Concomitant]
     Active Substance: NITROFURANTOIN
  13. NATRIUMBICARBONAAT [Concomitant]
  14. CARBOPLATIN. [Suspect]
     Active Substance: CARBOPLATIN
     Indication: OVARIAN GERM CELL EMBRYONAL CARCINOMA STAGE III
     Dosage: DAILY DOSE: 5 AUC
     Route: 041
     Dates: start: 20161222, end: 20161222
  15. CARBOPLATIN. [Suspect]
     Active Substance: CARBOPLATIN
     Dosage: DAILY DOSE: 5 AUC
     Route: 041
     Dates: start: 2017, end: 20170529
  16. REDOMEX [Concomitant]
     Active Substance: AMITRIPTYLINE HYDROCHLORIDE
  17. MONOPROST [Concomitant]
     Active Substance: LATANOPROST
  18. DOXORUBICIN [Suspect]
     Active Substance: DOXORUBICIN
     Dosage: 30 MG/M2 DAILY;
     Route: 041
     Dates: start: 2017, end: 20170529
  19. GLUCOSE 5% + NACL 0.9% [Concomitant]
  20. SANDOSTATINE [Concomitant]
     Active Substance: OCTREOTIDE ACETATE
  21. QUESTRAN [Concomitant]
     Active Substance: CHOLESTYRAMINE

REACTIONS (3)
  - Hyperkalaemia [Recovered/Resolved]
  - Thrombocytopenia [Recovered/Resolved]
  - Pyuria [Unknown]

NARRATIVE: CASE EVENT DATE: 20170119
